FAERS Safety Report 5254659-X (Version None)
Quarter: 2007Q1

REPORT INFORMATION
  Report Type: 
  Country: None (occurrence: None)
  Receive Date: 20070302
  Receipt Date: 20070220
  Transmission Date: 20070707
  Serious: Yes (Hospitalization, Other)
  Sender: FDA-Public Use
  Company Number: US-PFIZER INC-2007015110

PATIENT
  Sex: Female
  Weight: 86.2 kg

DRUGS (9)
  1. CHANTIX [Suspect]
     Indication: SMOKING CESSATION THERAPY
  2. DOXYCYCLINE [Suspect]
  3. ERYTHROMYCIN [Suspect]
  4. AUGMENTIN [Suspect]
  5. ALDACTONE [Suspect]
  6. ALL OTHER THERAPEUTIC PRODUCTS [Suspect]
  7. ESTRADIOL [Concomitant]
  8. PRILOSEC [Concomitant]
  9. SYNTHETICS, INCL PAPAVERINE [Concomitant]

REACTIONS (14)
  - ASTHMA [None]
  - BLOOD TRIGLYCERIDES INCREASED [None]
  - CHEMOTHERAPY [None]
  - DRUG HYPERSENSITIVITY [None]
  - FLUID RETENTION [None]
  - FLUSHING [None]
  - HYPERTENSION [None]
  - HYPOTHYROIDISM [None]
  - INSOMNIA [None]
  - MEMORY IMPAIRMENT [None]
  - NAUSEA [None]
  - PHARYNGEAL OEDEMA [None]
  - PRURITUS [None]
  - SWOLLEN TONGUE [None]
